FAERS Safety Report 8591884-4 (Version None)
Quarter: 2012Q3

REPORT INFORMATION
  Report Type: 
  Country: None (occurrence: None)
  Receive Date: 20120814
  Receipt Date: 20120813
  Transmission Date: 20120928
  Serious: Yes (Other)
  Sender: FDA-Public Use
  Company Number: PHEH2009US00447

PATIENT
  Sex: Male

DRUGS (11)
  1. VICODIN [Concomitant]
     Dosage: 1 DF, Q4H PRN
     Route: 048
  2. PRILOSEC [Concomitant]
  3. ZOMETA [Suspect]
     Indication: OSTEOPOROSIS
  4. ZOMETA [Suspect]
     Indication: BONE LOSS
  5. AROMASIN [Concomitant]
  6. PEN-VEE K [Concomitant]
     Dosage: 500 MG, QID
     Route: 048
  7. PAXIL [Concomitant]
  8. IBUPROFEN [Concomitant]
     Dosage: 600 MG, Q6H
     Route: 048
  9. CHLORHEXIDINE GLUCONATE [Concomitant]
  10. ZOMETA [Suspect]
     Indication: METASTASES TO PELVIS
  11. OXYCODONE [Concomitant]

REACTIONS (36)
  - VASCULAR CALCIFICATION [None]
  - TONSILLAR DISORDER [None]
  - GASTROOESOPHAGEAL REFLUX DISEASE [None]
  - TUBERCULOSIS [None]
  - ATELECTASIS [None]
  - DEPRESSION [None]
  - HYPOAESTHESIA [None]
  - HYPOMAGNESAEMIA [None]
  - AORTIC CALCIFICATION [None]
  - COMPRESSION FRACTURE [None]
  - ERYTHEMA [None]
  - BONE MARROW OEDEMA [None]
  - ORAL PAPILLOMA [None]
  - HYPERKERATOSIS [None]
  - FACET JOINT SYNDROME [None]
  - OSTEOARTHRITIS [None]
  - THYROID NEOPLASM [None]
  - OSTEONECROSIS OF JAW [None]
  - DIVERTICULUM INTESTINAL [None]
  - GLAUCOMA [None]
  - ARTHRITIS [None]
  - HIATUS HERNIA [None]
  - LYMPHADENOPATHY [None]
  - FACIAL BONES FRACTURE [None]
  - OSTEOMYELITIS [None]
  - BONE LESION [None]
  - FIBROSIS [None]
  - PURULENT DISCHARGE [None]
  - JAW FRACTURE [None]
  - ULCER [None]
  - ACTINOMYCOSIS [None]
  - INTERVERTEBRAL DISC DEGENERATION [None]
  - EXPOSED BONE IN JAW [None]
  - OSTEITIS [None]
  - PAIN IN JAW [None]
  - CATARACT [None]
